FAERS Safety Report 7463835-7 (Version None)
Quarter: 2011Q2

REPORT INFORMATION
  Report Type: 
  Country: None (occurrence: None)
  Receive Date: 20110506
  Receipt Date: 20110427
  Transmission Date: 20111010
  Serious: Yes (Other)
  Sender: FDA-Public Use
  Company Number: FI-JNJFOC-20110500510

PATIENT
  Age: 41 Year
  Sex: Female

DRUGS (1)
  1. NICOTINE [Suspect]
     Indication: SMOKING CESSATION THERAPY
     Dosage: 15-30 PIECES DEPENDING ON IF SHE IS NERVOUS OR NOT
     Route: 048

REACTIONS (4)
  - INCORRECT DRUG ADMINISTRATION DURATION [None]
  - NERVOUSNESS [None]
  - PRODUCT QUALITY ISSUE [None]
  - DEPENDENCE [None]
